FAERS Safety Report 5633296-9 (Version None)
Quarter: 2008Q1

REPORT INFORMATION
  Report Type: 
  Country: None (occurrence: None)
  Receive Date: 20080221
  Receipt Date: 20080212
  Transmission Date: 20080703
  Serious: Yes (Death)
  Sender: FDA-Public Use
  Company Number: US-PURDUE-USA_2007_0030273

PATIENT
  Age: 55 Year
  Sex: Male
  Weight: 68 kg

DRUGS (4)
  1. SYNTHROID [Concomitant]
     Indication: HYPOTHYROIDISM
     Dosage: 250 MCG, DAILY
  2. RITALIN [Concomitant]
     Indication: PAIN
     Dosage: 15 MG, BID
  3. OXYCONTIN [Suspect]
     Indication: CANCER PAIN
     Dosage: 600 MG, TID
     Route: 048
     Dates: start: 20071003
  4. OXYIR [Suspect]
     Indication: CANCER PAIN
     Dosage: 150 MG, SEE TEXT
     Route: 048
     Dates: start: 20071003

REACTIONS (2)
  - DYSPHAGIA [None]
  - MALIGNANT NEOPLASM PROGRESSION [None]
